FAERS Safety Report 7969722-X (Version None)
Quarter: 2011Q4

REPORT INFORMATION
  Report Type: 
  Country: None (occurrence: None)
  Receive Date: 20111122
  Receipt Date: 20110810
  Transmission Date: 20120403
  Serious: No
  Sender: FDA-Public Use
  Company Number: PHEH2011US01470

PATIENT
  Age: 65 Year
  Sex: Female

DRUGS (5)
  1. GILENYA [Suspect]
     Dosage: 0.5MG,ONE CAPSULE EVERY DAY, ORAL
     Route: 048
  2. ZANAFLEX [Concomitant]
  3. ANTIHYPERTENSIVE DRUGS (NO INGREDIENTS/SUBSTANCES) [Concomitant]
  4. ZOCOR [Concomitant]
  5. VESICARE [Concomitant]

REACTIONS (2)
  - PAIN [None]
  - PAIN IN EXTREMITY [None]
